FAERS Safety Report 8980926 (Version 1)
Quarter: 2012Q4

REPORT INFORMATION
  Report Type: 
  Country: BR (occurrence: BR)
  Receive Date: 20121221
  Receipt Date: 20121221
  Transmission Date: 20130627
  Serious: Yes (Hospitalization)
  Sender: FDA-Public Use
  Company Number: BR-ASTRAZENECA-2012SE93454

PATIENT
  Age: 79 Year
  Sex: Female
  Weight: 53 kg

DRUGS (15)
  1. NEXIUM [Suspect]
     Indication: GASTRITIS
     Route: 048
     Dates: start: 2010, end: 201212
  2. NEXIUM [Suspect]
     Indication: HIATUS HERNIA
     Route: 048
     Dates: start: 2010, end: 201212
  3. NEXIUM [Suspect]
     Indication: GASTRITIS
     Route: 048
  4. NEXIUM [Suspect]
     Indication: HIATUS HERNIA
     Route: 048
  5. CRESTOR [Suspect]
     Indication: BLOOD CHOLESTEROL INCREASED
     Route: 048
     Dates: start: 2008
  6. CRESTOR [Suspect]
     Indication: BLOOD CHOLESTEROL INCREASED
     Route: 048
     Dates: start: 2008
  7. OLMETEC [Concomitant]
     Route: 048
  8. APRESOLINA [Concomitant]
     Indication: HYPERTENSION
     Route: 048
  9. CAPTOPRIL [Concomitant]
     Indication: HYPERTENSION
     Route: 048
  10. LASIX [Concomitant]
     Indication: HYPERTENSION
     Route: 048
  11. ASA PEDIATRIC [Concomitant]
     Route: 048
  12. SYNTHROID [Concomitant]
     Route: 048
  13. CALCIUM [Concomitant]
     Route: 048
  14. BENERVA [Concomitant]
     Route: 048
  15. DIGOXIN [Concomitant]
     Route: 048

REACTIONS (5)
  - Faeces discoloured [Recovered/Resolved]
  - Haematochezia [Recovered/Resolved]
  - Gastritis [Not Recovered/Not Resolved]
  - Hiatus hernia [Not Recovered/Not Resolved]
  - Intentional drug misuse [Unknown]
